FAERS Safety Report 11733468 (Version 1)
Quarter: 2015Q4

REPORT INFORMATION
  Report Type: Spontaneous
  Country: US (occurrence: US)
  Receive Date: 20151110
  Receipt Date: 20151110
  Transmission Date: 20160304
  Serious: No
  Sender: FDA-Public Use
  Company Number: US-ELI_LILLY_AND_COMPANY-US201205006954

PATIENT
  Age: 65 Year
  Sex: Female

DRUGS (2)
  1. TYLENOL PM [Concomitant]
     Active Substance: ACETAMINOPHEN\DIPHENHYDRAMINE
     Indication: INSOMNIA
  2. FORTEO [Suspect]
     Active Substance: TERIPARATIDE
     Indication: OSTEOPOROSIS
     Dosage: UNK, QD
     Dates: start: 201201, end: 201204

REACTIONS (7)
  - Feeling abnormal [Unknown]
  - Blood pressure abnormal [Recovered/Resolved]
  - Pain in extremity [Recovering/Resolving]
  - Intentional product misuse [Unknown]
  - Insomnia [Recovered/Resolved]
  - Arthralgia [Unknown]
  - Discomfort [Unknown]

NARRATIVE: CASE EVENT DATE: 201204
